FAERS Safety Report 7909433-X (Version None)
Quarter: 2011Q4

REPORT INFORMATION
  Report Type: 
  Country: None (occurrence: None)
  Receive Date: 20111111
  Receipt Date: 20111108
  Transmission Date: 20120403
  Serious: Yes (Other)
  Sender: FDA-Public Use
  Company Number: DE-PFIZER INC-2003026974

PATIENT
  Age: 58 Year
  Sex: Male
  Weight: 66 kg

DRUGS (5)
  1. ZITHROMAX [Suspect]
     Dosage: UNK
     Route: 048
     Dates: start: 19980311, end: 19980313
  2. CERIVASTATIN SODIUM [Suspect]
     Indication: HYPERCHOLESTEROLAEMIA
     Dates: start: 19980220, end: 19980321
  3. ZITHROMAX [Suspect]
     Indication: PROPHYLAXIS
     Dosage: UNK
     Route: 048
     Dates: start: 19980224, end: 19980226
  4. ASPIRIN [Concomitant]
  5. VERAPAMIL HCL [Concomitant]
     Dates: start: 19980223, end: 19980228

REACTIONS (4)
  - MYALGIA [None]
  - TACHYCARDIA [None]
  - LABORATORY TEST ABNORMAL [None]
  - MUSCULAR WEAKNESS [None]
